FAERS Safety Report 4514560-3 (Version None)
Quarter: 2004Q4

REPORT INFORMATION
  Report Type: 
  Country: None (occurrence: None)
  Receive Date: 20041126
  Receipt Date: 20041110
  Transmission Date: 20050328
  Serious: Yes (Other)
  Sender: FDA-Public Use
  Company Number: SGB1-2004-00412

PATIENT
  Age: 38 Year
  Sex: Female

DRUGS (1)
  1. AGRYLIN [Suspect]
     Indication: ESSENTIAL THROMBOCYTHAEMIA
     Dosage: ORAL
     Route: 048

REACTIONS (4)
  - ANAEMIA [None]
  - BLOOD ERYTHROPOIETIN INCREASED [None]
  - MYELOFIBROSIS [None]
  - RETICULOCYTE COUNT DECREASED [None]
